FAERS Safety Report 7465244-3 (Version None)
Quarter: 2011Q2

REPORT INFORMATION
  Report Type: 
  Country: None (occurrence: None)
  Receive Date: 20110509
  Receipt Date: 20110427
  Transmission Date: 20111010
  Serious: Yes (Other)
  Sender: FDA-Public Use
  Company Number: PHHY2011ES35618

PATIENT
  Age: 74 Year
  Sex: Male

DRUGS (3)
  1. HEMOVAS [Concomitant]
  2. TEGRETOL [Suspect]
     Indication: TRIGEMINAL NEURALGIA
     Dosage: 600MG DAILY
     Route: 048
     Dates: start: 20110412, end: 20110414
  3. ASPIRIN [Concomitant]

REACTIONS (1)
  - ATAXIA [None]
